FAERS Safety Report 13178978 (Version 2)
Quarter: 2017Q1

REPORT INFORMATION
  Report Type: Spontaneous
  Country: US (occurrence: US)
  Receive Date: 20170202
  Receipt Date: 20170207
  Transmission Date: 20170428
  Serious: No
  Sender: FDA-Public Use
  Company Number: US-PFIZER INC-2017045462

PATIENT
  Sex: Male

DRUGS (1)
  1. VENLAFAXINE HCL [Suspect]
     Active Substance: VENLAFAXINE HYDROCHLORIDE
     Dosage: THREE 75MG CAPSULES DAILY
     Dates: start: 2016

REACTIONS (4)
  - Anger [Unknown]
  - Anxiety [Unknown]
  - Drug resistance [Unknown]
  - Drug ineffective [Unknown]
